FAERS Safety Report 9871505 (Version 1)
Quarter: 2014Q1

REPORT INFORMATION
  Report Type: Spontaneous
  Country: US (occurrence: None)
  Receive Date: 20140204
  Receipt Date: 20140204
  Transmission Date: 20141002
  Serious: Yes (Hospitalization, Other)
  Sender: FDA-Public Use
  Company Number: None

PATIENT
  Sex: Female
  Weight: 67.13 kg

DRUGS (11)
  1. DIGOXIN [Suspect]
  2. METFORMIN [Concomitant]
  3. NEXIUM [Concomitant]
  4. PRAVASTATIN [Concomitant]
  5. DILTIAZEM [Concomitant]
  6. IBANDRONATE [Concomitant]
  7. WARFARIN [Concomitant]
  8. VITAMIN B-12 [Concomitant]
  9. D3 [Concomitant]
  10. CORAL CALCIUM [Concomitant]
  11. GLUCOSAMINE [Concomitant]

REACTIONS (13)
  - Alopecia [None]
  - Hypotonia [None]
  - Madarosis [None]
  - Madarosis [None]
  - Dyspnoea [None]
  - Dizziness [None]
  - Nausea [None]
  - Vomiting [None]
  - Diarrhoea [None]
  - Vision blurred [None]
  - Abdominal pain upper [None]
  - Toxicity to various agents [None]
  - Reaction to drug excipients [None]
